FAERS Safety Report 13754019 (Version 1)
Quarter: 2017Q3

REPORT INFORMATION
  Report Type: Spontaneous
  Country: US (occurrence: US)
  Receive Date: 20170714
  Receipt Date: 20170714
  Transmission Date: 20171127
  Serious: Yes (Other)
  Sender: FDA-Public Use
  Company Number: None

PATIENT
  Age: 61 Year
  Sex: Female

DRUGS (2)
  1. FLUOXETINE 10MG 3 CAPS DAILY [Suspect]
     Active Substance: FLUOXETINE HYDROCHLORIDE
     Indication: BULIMIA NERVOSA
     Route: 048
     Dates: start: 201702, end: 201703
  2. FLUOXETINE 10MG 3 CAPS DAILY [Suspect]
     Active Substance: FLUOXETINE HYDROCHLORIDE
     Indication: DEPRESSION
     Route: 048
     Dates: start: 201702, end: 201703

REACTIONS (5)
  - Product substitution issue [None]
  - Abdominal pain [None]
  - Vomiting [None]
  - Constipation [None]
  - Nausea [None]

NARRATIVE: CASE EVENT DATE: 20170205
